FAERS Safety Report 9827137 (Version 1)
Quarter: 2014Q1

REPORT INFORMATION
  Report Type: Other
  Country: DK (occurrence: US)
  Receive Date: 20140117
  Receipt Date: 20140117
  Transmission Date: 20141002
  Serious: Yes (Death)
  Sender: FDA-Public Use
  Company Number: US-FRI-1000052877

PATIENT
  Age: 61 Year
  Sex: Female

DRUGS (5)
  1. CITALOPRAM [Suspect]
  2. ACETAMINOPHEN [Suspect]
  3. AMITRIPTYLINE [Suspect]
  4. GABAPENTIN [Suspect]
  5. HYDROCODONE [Suspect]

REACTIONS (1)
  - Toxicity to various agents [Fatal]
